FAERS Safety Report 9550597 (Version 1)
Quarter: 2013Q3

REPORT INFORMATION
  Report Type: Spontaneous
  Country: US (occurrence: US)
  Receive Date: 20130924
  Receipt Date: 20130924
  Transmission Date: 20140515
  Serious: No
  Sender: FDA-Public Use
  Company Number: US-SANOFI-AVENTIS-2012SA087103

PATIENT
  Age: 57 Year
  Sex: Female

DRUGS (1)
  1. AUBAGIO [Suspect]
     Indication: MULTIPLE SCLEROSIS
     Route: 048
     Dates: start: 20121108

REACTIONS (5)
  - Pyrexia [Unknown]
  - Headache [Recovering/Resolving]
  - Nausea [Unknown]
  - Alopecia [Recovering/Resolving]
  - Pruritus [Not Recovered/Not Resolved]
